FAERS Safety Report 7738613-1 (Version None)
Quarter: 2011Q3

REPORT INFORMATION
  Report Type: 
  Country: None (occurrence: None)
  Receive Date: 20110908
  Receipt Date: 20110830
  Transmission Date: 20111222
  Serious: Yes (Hospitalization, Other)
  Sender: FDA-Public Use
  Company Number: US-ASTRAZENECA-2010SE37633

PATIENT
  Age: 50 Year
  Sex: Female
  Weight: 59 kg

DRUGS (5)
  1. ATIVAN [Concomitant]
     Indication: ANXIETY
     Dosage: ONCE
     Route: 048
     Dates: start: 20110101
  2. SEROQUEL [Suspect]
     Indication: BIPOLAR DISORDER
     Dosage: 300 MG BID
     Route: 048
     Dates: start: 20060101
  3. CELEXA [Concomitant]
     Indication: HORMONE LEVEL ABNORMAL
     Dosage: ONCE
     Route: 048
     Dates: start: 20000101
  4. DOXEPIN [Concomitant]
     Indication: INSOMNIA
     Dosage: AT NIGHT
     Route: 048
     Dates: start: 20100101
  5. TEGRETOL [Concomitant]
     Indication: AFFECTIVE DISORDER
     Dosage: ONCE
     Route: 048
     Dates: start: 20100101

REACTIONS (7)
  - DRUG DOSE OMISSION [None]
  - BULIMIA NERVOSA [None]
  - CRYING [None]
  - FEELING ABNORMAL [None]
  - DECREASED APPETITE [None]
  - DEPRESSED MOOD [None]
  - SUICIDAL IDEATION [None]
